FAERS Safety Report 23473187 (Version 1)
Quarter: 2024Q1

REPORT INFORMATION
  Report Type: Spontaneous
  Country: GB (occurrence: GB)
  Receive Date: 20240203
  Receipt Date: 20240203
  Transmission Date: 20240410
  Serious: Yes (Other)
  Sender: FDA-Public Use
  Company Number: GB-MHRA-MED-202401192232042810-VCZFJ

PATIENT
  Sex: Female
  Weight: 105 kg

DRUGS (1)
  1. APIXABAN [Suspect]
     Active Substance: APIXABAN
     Indication: Product used for unknown indication
     Dosage: 5 MILLIGRAM, TWO TIMES A DAY
     Route: 065

REACTIONS (2)
  - Heavy menstrual bleeding [Recovered/Resolved]
  - Migraine [Recovered/Resolved]
